FAERS Safety Report 4282475-4 (Version None)
Quarter: 2004Q1

REPORT INFORMATION
  Report Type: 
  Country: None (occurrence: None)
  Receive Date: 20040129
  Receipt Date: 20040119
  Transmission Date: 20041129
  Serious: Yes (Life-Threatening, Hospitalization)
  Sender: FDA-Public Use
  Company Number: 233451

PATIENT
  Age: 66 Year
  Sex: Male

DRUGS (6)
  1. NOVOLIN 70/30 [Suspect]
     Indication: INSULIN-REQUIRING TYPE II DIABETES MELLITUS
     Dosage: 28 IU, QD, SUBCUTANEOUS
     Route: 058
     Dates: start: 20031009, end: 20031016
  2. NOVOFINE 31 (NEEDLE) [Concomitant]
  3. DIGOXIN [Concomitant]
  4. CATAPRES [Concomitant]
  5. PLAVIX [Concomitant]
  6. FLAGYL [Concomitant]

REACTIONS (6)
  - CARDIOMEGALY [None]
  - CONVULSION [None]
  - DIABETIC KETOACIDOSIS [None]
  - PHARMACEUTICAL PRODUCT COMPLAINT [None]
  - SUBDURAL HAEMATOMA [None]
  - SUBDURAL HYGROMA [None]
